FAERS Safety Report 16667963 (Version 1)
Quarter: 2019Q3

REPORT INFORMATION
  Report Type: Spontaneous
  Country: US (occurrence: US)
  Receive Date: 20190619
  Receipt Date: 20190619
  Transmission Date: 20191004
  Serious: Yes (Other)
  Sender: FDA-Public Use
  Company Number: None

PATIENT
  Age: 42 Year
  Sex: Female
  Weight: 58.97 kg

DRUGS (3)
  1. NITROFURANTOIN MCR [Suspect]
     Active Substance: NITROFURANTOIN
     Indication: URINARY TRACT INFECTION
     Dosage: ?          QUANTITY:10 DF DOSAGE FORM;?
     Route: 048
     Dates: start: 20180912, end: 20180916
  2. ONE-A-DAY NOS [Concomitant]
     Active Substance: MINERALS\VITAMINS
  3. PRENATAL VITAMINS [Concomitant]
     Active Substance: VITAMINS

REACTIONS (8)
  - Oropharyngeal pain [None]
  - Neck pain [None]
  - Hypersensitivity [None]
  - Pain in extremity [None]
  - Pain in jaw [None]
  - Ear pain [None]
  - Pain [None]
  - Chest pain [None]

NARRATIVE: CASE EVENT DATE: 20180921
